FAERS Safety Report 7452837-2 (Version None)
Quarter: 2011Q2

REPORT INFORMATION
  Report Type: 
  Country: None (occurrence: None)
  Receive Date: 20110502
  Receipt Date: 20110428
  Transmission Date: 20111010
  Serious: Yes (Life-Threatening, Hospitalization)
  Sender: FDA-Public Use
  Company Number: US-ASTRAZENECA-2011SE16414

PATIENT
  Age: 69 Year
  Sex: Male

DRUGS (2)
  1. CRESTOR [Suspect]
     Indication: PERIPHERAL VASCULAR DISORDER
     Route: 048
  2. CRESTOR [Suspect]
     Indication: CORONARY ARTERY DISEASE
     Route: 048

REACTIONS (3)
  - MALAISE [None]
  - PERITONEAL ABSCESS [None]
  - PLEURAL EFFUSION [None]
